FAERS Safety Report 4457684-1 (Version None)
Quarter: 2004Q3

REPORT INFORMATION
  Report Type: 
  Country: None (occurrence: None)
  Receive Date: 20040831
  Receipt Date: 20040611
  Transmission Date: 20050211
  Serious: No
  Sender: FDA-Public Use
  Company Number: MPS1-10215

PATIENT
  Age: 5 Year
  Sex: Female
  Weight: 17 kg

DRUGS (1)
  1. ALDURAZYME [Suspect]
     Indication: MUCOPOLYSACCHARIDOSIS I
     Dosage: 100 U/KG QWK IV
     Route: 042
     Dates: start: 20030610

REACTIONS (3)
  - CHILLS [None]
  - HYPERTENSION [None]
  - PYREXIA [None]
